FAERS Safety Report 10734388 (Version 1)
Quarter: 2015Q1

REPORT INFORMATION
  Report Type: Spontaneous
  Country: GB (occurrence: GB)
  Receive Date: 20150123
  Receipt Date: 20150123
  Transmission Date: 20150721
  Serious: Yes (Other)
  Sender: FDA-Public Use
  Company Number: GB-GILEAD-2015-0132080

PATIENT
  Age: 48 Year
  Sex: Female
  Weight: 68 kg

DRUGS (2)
  1. EVIPLERA [Suspect]
     Active Substance: EMTRICITABINE\RILPIVIRINE\TENOFOVIR DISOPROXIL FUMARATE
     Indication: VIRAL LOAD INCREASED
     Dosage: 200MG EMTRICITABINE, 25MG RILPIVIRINE, 245MG TENOFOVIR DISOPROXIL
     Route: 048
     Dates: start: 20141118, end: 20141213
  2. OLANZAPINE. [Concomitant]
     Active Substance: OLANZAPINE

REACTIONS (4)
  - Skin discolouration [Unknown]
  - Rash pruritic [Recovered/Resolved with Sequelae]
  - Blister [Recovered/Resolved with Sequelae]
  - Skin exfoliation [Unknown]

NARRATIVE: CASE EVENT DATE: 20141118
